FAERS Safety Report 4629889-8 (Version None)
Quarter: 2005Q2

REPORT INFORMATION
  Report Type: 
  Country: None (occurrence: None)
  Receive Date: 20050406
  Receipt Date: 20050322
  Transmission Date: 20051028
  Serious: Yes (Other)
  Sender: FDA-Public Use
  Company Number: JP_040603517

PATIENT
  Age: 74 Year
  Sex: Female
  Weight: 52 kg

DRUGS (7)
  1. EVISTA [Suspect]
     Indication: OSTEOPOROSIS
     Dosage: 60 MG/1 DAY
     Dates: start: 20040514, end: 20040619
  2. METHYCOBAL (MECOBALLAMIN) [Concomitant]
  3. CALCITRIOL [Concomitant]
  4. ADALAT [Concomitant]
  5. ALDACTONE [Concomitant]
  6. LIPITOR [Concomitant]
  7. MUCOSOTA (REBAMIPIDE) [Concomitant]

REACTIONS (1)
  - RETINAL ARTERY OCCLUSION [None]
